FAERS Safety Report 19463988 (Version 1)
Quarter: 2021Q2

REPORT INFORMATION
  Report Type: Spontaneous
  Country: US (occurrence: US)
  Receive Date: 20210625
  Receipt Date: 20210625
  Transmission Date: 20210717
  Serious: Yes (Other)
  Sender: FDA-Public Use
  Company Number: US-SA-2021SA209499

PATIENT
  Sex: Female

DRUGS (1)
  1. AUBAGIO [Suspect]
     Active Substance: TERIFLUNOMIDE
     Indication: BLOOD TEST ABNORMAL
     Dosage: 1 DF, QD
     Route: 048

REACTIONS (3)
  - Product use in unapproved indication [Unknown]
  - Multiple sclerosis [Unknown]
  - Drug ineffective [Unknown]
